FAERS Safety Report 17017256 (Version 1)
Quarter: 2019Q4

REPORT INFORMATION
  Report Type: Spontaneous
  Country: US (occurrence: US)
  Receive Date: 20191111
  Receipt Date: 20191111
  Transmission Date: 20200122
  Serious: No
  Sender: FDA-Public Use
  Company Number: US-LANNETT COMPANY, INC.-US-2019LAN001020

PATIENT
  Age: 82 Year
  Sex: Female

DRUGS (1)
  1. PILOCARPINE HYDROCHLORIDE. [Suspect]
     Active Substance: PILOCARPINE HYDROCHLORIDE
     Indication: DRY MOUTH
     Dosage: 3 TABLETS, QD
     Route: 048

REACTIONS (11)
  - Mouth swelling [Not Recovered/Not Resolved]
  - Lip blister [Not Recovered/Not Resolved]
  - Lip swelling [Not Recovered/Not Resolved]
  - Headache [Not Recovered/Not Resolved]
  - Tongue blistering [Not Recovered/Not Resolved]
  - Hyperhidrosis [Not Recovered/Not Resolved]
  - Chills [Not Recovered/Not Resolved]
  - Oral mucosal blistering [Not Recovered/Not Resolved]
  - Eye pain [Not Recovered/Not Resolved]
  - Tongue discolouration [Not Recovered/Not Resolved]
  - Tongue discomfort [Not Recovered/Not Resolved]

NARRATIVE: CASE EVENT DATE: 20190623
